FAERS Safety Report 18404563 (Version 1)
Quarter: 2020Q4

REPORT INFORMATION
  Report Type: Spontaneous
  Country: US (occurrence: US)
  Receive Date: 20201020
  Receipt Date: 20201020
  Transmission Date: 20210114
  Serious: No
  Sender: FDA-Public Use
  Company Number: US-NOVAST LABORATORIES LTD.-2019NOV000299

PATIENT
  Age: 27 Year
  Sex: Female
  Weight: 68.03 kg

DRUGS (1)
  1. DEBLITANE [Suspect]
     Active Substance: NORETHINDRONE
     Indication: CONTRACEPTION
     Dosage: UNK UNK, QD
     Route: 048
     Dates: start: 201806

REACTIONS (2)
  - Product dose omission issue [Unknown]
  - Pregnancy [Unknown]

NARRATIVE: CASE EVENT DATE: 201812
